FAERS Safety Report 8764711 (Version 1)
Quarter: 2012Q4

REPORT INFORMATION
  Report Type: 
  Country: NL (occurrence: NL)
  Receive Date: 20120831
  Receipt Date: 20120831
  Transmission Date: 20130627
  Serious: Yes (Other)
  Sender: FDA-Public Use
  Company Number: NL-PFIZER INC-2012212066

PATIENT
  Age: 49 Year
  Sex: Female

DRUGS (1)
  1. LIPITOR [Suspect]
     Indication: TYPE IIA HYPERLIPIDAEMIA
     Dosage: 20 mg, UNK

REACTIONS (2)
  - Hepatic cirrhosis [Unknown]
  - Fibromyalgia [Recovering/Resolving]
